FAERS Safety Report 5481254-X (Version None)
Quarter: 2007Q4

REPORT INFORMATION
  Report Type: 
  Country: None (occurrence: None)
  Receive Date: 20071004
  Receipt Date: 20071004
  Transmission Date: 20080405
  Serious: No
  Sender: FDA-Public Use
  Company Number: None

PATIENT
  Sex: Female

DRUGS (1)
  1. REBIF [Suspect]
     Indication: MULTIPLE SCLEROSIS
     Dosage: 44MCG TIW SQ
     Route: 058
     Dates: start: 20070815, end: 20071002

REACTIONS (2)
  - INFLUENZA LIKE ILLNESS [None]
  - INJECTION SITE REACTION [None]
